FAERS Safety Report 4800435-9 (Version None)
Quarter: 2005Q4

REPORT INFORMATION
  Report Type: 
  Country: None (occurrence: None)
  Receive Date: 20051011
  Receipt Date: 20050926
  Transmission Date: 20060501
  Serious: Yes (Hospitalization)
  Sender: FDA-Public Use
  Company Number: THYM-10739

PATIENT
  Age: 66 Year
  Sex: Male
  Weight: 111 kg

DRUGS (2)
  1. THYMOGLOBULIN [Suspect]
     Indication: APLASTIC ANAEMIA
     Dosage: 3.5 MG/KG IV
     Route: 042
     Dates: start: 20050514, end: 20050518
  2. CYCLOSPORINE [Concomitant]

REACTIONS (1)
  - FEBRILE NEUTROPENIA [None]
